FAERS Safety Report 6527069-2 (Version None)
Quarter: 2009Q4

REPORT INFORMATION
  Report Type: 
  Country: None (occurrence: None)
  Receive Date: 20091229
  Receipt Date: 20091217
  Transmission Date: 20100525
  Serious: Yes (Life-Threatening, Hospitalization)
  Sender: FDA-Public Use
  Company Number: 2009029831

PATIENT
  Age: 67 Year
  Sex: Male
  Weight: 108 kg

DRUGS (11)
  1. TREANDA [Suspect]
     Dosage: 1 IN 1 D, INTRAVENOUS
     Route: 042
     Dates: start: 20091201, end: 20091202
  2. RITUXIMAB (RITUXIMAB) (750 MILLIGRAM) [Suspect]
     Dosage: 750 MG (750 MG, 1 IN 1 D)
     Dates: start: 20091130, end: 20091130
  3. TAMSULOSIN HCL [Concomitant]
  4. AMLODIPINE [Concomitant]
  5. METOPROLOL (METOPROLOL) [Concomitant]
  6. RAMIPRIL [Concomitant]
  7. TORSEMIDE [Concomitant]
  8. ALLOPURINOL [Concomitant]
  9. COTRIM [Concomitant]
  10. AMPHOTERICIN B [Concomitant]
  11. PREDNISOLON (PREDISOLONE) [Concomitant]

REACTIONS (3)
  - EPISTAXIS [None]
  - HYPERHIDROSIS [None]
  - THROMBOCYTOPENIA [None]
